FAERS Safety Report 11167354 (Version 1)
Quarter: 2015Q2

REPORT INFORMATION
  Report Type: Report from Study
  Country: US (occurrence: US)
  Receive Date: 20150605
  Receipt Date: 20150605
  Transmission Date: 20150821
  Serious: Yes (Hospitalization)
  Sender: FDA-Public Use
  Company Number: US-BIOGENIDEC-2015BI074893

PATIENT
  Age: 71 Year
  Sex: Female

DRUGS (11)
  1. TECFIDERA [Suspect]
     Active Substance: DIMETHYL FUMARATE
     Indication: MULTIPLE SCLEROSIS
     Route: 048
     Dates: start: 20140211
  2. MONTELUKAST SODIUM. [Concomitant]
     Active Substance: MONTELUKAST SODIUM
  3. POLYETHYLENE GLYCOL 1000 [Concomitant]
     Active Substance: POLYETHYLENE GLYCOL 1000
  4. PREMARIN [Concomitant]
     Active Substance: ESTROGENS, CONJUGATED
  5. FLUTICASONE PROPIONATE. [Concomitant]
     Active Substance: FLUTICASONE PROPIONATE
  6. PROAIR HFA [Concomitant]
     Active Substance: ALBUTEROL SULFATE
  7. LEVOTHYROXINE SODIUM. [Concomitant]
     Active Substance: LEVOTHYROXINE SODIUM
  8. TYLENOL ARTHRITIS PAIN [Concomitant]
     Active Substance: ACETAMINOPHEN
  9. QVAR [Concomitant]
     Active Substance: BECLOMETHASONE DIPROPIONATE
  10. SPIRONOLACTONE. [Concomitant]
     Active Substance: SPIRONOLACTONE
  11. ANUSOL-HC [Concomitant]

REACTIONS (3)
  - Gastrointestinal viral infection [Unknown]
  - Diarrhoea infectious [Unknown]
  - Hypoaesthesia [Not Recovered/Not Resolved]

NARRATIVE: CASE EVENT DATE: 201505
